FAERS Safety Report 6271310-0 (Version None)
Quarter: 2009Q3

REPORT INFORMATION
  Report Type: 
  Country: None (occurrence: None)
  Receive Date: 20090717
  Receipt Date: 20090706
  Transmission Date: 20100115
  Serious: Yes (Other)
  Sender: FDA-Public Use
  Company Number: CN-BAYER-200924985GPV

PATIENT
  Age: 92 Year
  Sex: Male

DRUGS (2)
  1. AVELOX [Suspect]
     Indication: CHRONIC OBSTRUCTIVE PULMONARY DISEASE
     Dosage: UNIT DOSE: 400 MG
     Route: 042
     Dates: start: 20080724, end: 20080725
  2. CEFOTAXIME [Concomitant]
     Indication: CHRONIC OBSTRUCTIVE PULMONARY DISEASE
     Dosage: TOTAL DAILY DOSE: 9.0 G  UNIT DOSE: 3 G
     Route: 042
     Dates: start: 20080724

REACTIONS (8)
  - CHEST DISCOMFORT [None]
  - DELIRIUM [None]
  - DYSPHORIA [None]
  - HALLUCINATION [None]
  - HALLUCINATION, AUDITORY [None]
  - LISTLESS [None]
  - PALPITATIONS [None]
  - VISUAL IMPAIRMENT [None]
